FAERS Safety Report 20069882 (Version 2)
Quarter: 2021Q4

REPORT INFORMATION
  Report Type: Spontaneous
  Country: US (occurrence: US)
  Receive Date: 20211115
  Receipt Date: 20211130
  Transmission Date: 20220303
  Serious: No
  Sender: FDA-Public Use
  Company Number: US-BIOMARINAP-US-2021-139582

PATIENT
  Age: 4 Year
  Sex: Male
  Weight: 11.61 kg

DRUGS (2)
  1. NAGLAZYME [Suspect]
     Active Substance: GALSULFASE
     Indication: Mucopolysaccharidosis VI
     Dosage: 10 MILLIGRAM, QW
     Route: 042
     Dates: start: 20200109
  2. IRON [Suspect]
     Active Substance: IRON
     Indication: Haemoglobin decreased
     Dosage: UNK
     Route: 033
     Dates: start: 20211004

REACTIONS (2)
  - Haemoglobin decreased [Not Recovered/Not Resolved]
  - Constipation [Not Recovered/Not Resolved]

NARRATIVE: CASE EVENT DATE: 20211012
